FAERS Safety Report 21536078 (Version 1)
Quarter: 2022Q4

REPORT INFORMATION
  Report Type: Spontaneous
  Country: US (occurrence: None)
  Receive Date: 20221031
  Receipt Date: 20221031
  Transmission Date: 20230113
  Serious: No
  Sender: FDA-Public Use
  Company Number: None

PATIENT
  Age: 72 Year
  Sex: Female

DRUGS (1)
  1. CAPECITABINE [Suspect]
     Active Substance: CAPECITABINE
     Dosage: 500MG DAILY ORAL?
     Route: 048
     Dates: start: 202210, end: 202210

REACTIONS (1)
  - Death [None]

NARRATIVE: CASE EVENT DATE: 20221026
